FAERS Safety Report 19172096 (Version 1)
Quarter: 2021Q2

REPORT INFORMATION
  Report Type: Spontaneous
  Country: US (occurrence: US)
  Receive Date: 20210423
  Receipt Date: 20210423
  Transmission Date: 20210717
  Serious: Yes (Hospitalization)
  Sender: FDA-Public Use
  Company Number: US-AMGEN-USASP2021061051

PATIENT
  Sex: Male

DRUGS (1)
  1. BLINCYTO [Suspect]
     Active Substance: BLINATUMOMAB
     Indication: ACUTE LYMPHOCYTIC LEUKAEMIA
     Dosage: 21.25 MICROGRAM EVERY 48 HRS, AT A CONTINUOUS RATE AT 5 MILLILITERS PER HOUR, 240 MILLILITERS PER 48
     Route: 065

REACTIONS (1)
  - Hospitalisation [Unknown]
